FAERS Safety Report 17065114 (Version 1)
Quarter: 2019Q4

REPORT INFORMATION
  Report Type: Spontaneous
  Country: US (occurrence: US)
  Receive Date: 20191122
  Receipt Date: 20191122
  Transmission Date: 20200122
  Serious: Yes (Hospitalization)
  Sender: FDA-Public Use
  Company Number: None

PATIENT
  Sex: Female

DRUGS (5)
  1. CINNAMON. [Concomitant]
     Active Substance: CINNAMON
     Dates: start: 20191121
  2. IRON SLOW [Concomitant]
     Dates: start: 20191121
  3. METFORMIN [Concomitant]
     Active Substance: METFORMIN HYDROCHLORIDE
     Dates: start: 20191121
  4. MULTIPLE VIT [Concomitant]
     Dates: start: 20191121
  5. HUMIRA [Suspect]
     Active Substance: ADALIMUMAB
     Indication: PSORIASIS
     Dosage: ?          OTHER FREQUENCY:EVERY OTHER WEEK;?
     Route: 058
     Dates: start: 20190312

REACTIONS (2)
  - Localised infection [None]
  - Ligament injury [None]
